FAERS Safety Report 5979906-8 (Version None)
Quarter: 2008Q4

REPORT INFORMATION
  Report Type: 
  Country: None (occurrence: None)
  Receive Date: 20081126
  Receipt Date: 20081111
  Transmission Date: 20090506
  Serious: Yes (Other)
  Sender: FDA-Public Use
  Company Number: DSA_32728_2008

PATIENT
  Sex: Male

DRUGS (2)
  1. HERBESSER R (HERBESSER R - DILTIAZEM HYDROCHLORIDE) (NOT SPECIFIED) [Suspect]
     Indication: DRUG USE FOR UNKNOWN INDICATION
     Dosage: 100 MG QD ORAL
     Route: 048
     Dates: start: 20080926, end: 20081001
  2. ANPLAG (ANPLAG-SARPOGRELATE HYDROCHLORIDE) ( NOT SPECIFIED) [Suspect]
     Indication: ARTERIAL OCCLUSIVE DISEASE
     Dosage: 300 MG, FREQUENCY UNKNOWN, ORAL
     Route: 048
     Dates: start: 20080409, end: 20081001

REACTIONS (2)
  - JOINT SWELLING [None]
  - OEDEMA PERIPHERAL [None]
